FAERS Safety Report 5908712-5 (Version None)
Quarter: 2008Q4

REPORT INFORMATION
  Report Type: 
  Country: None (occurrence: None)
  Receive Date: 20081006
  Receipt Date: 20081002
  Transmission Date: 20090506
  Serious: Yes (Death)
  Sender: FDA-Public Use
  Company Number: A0750319A

PATIENT
  Age: 86 Year
  Sex: Male

DRUGS (7)
  1. SERETIDE [Suspect]
     Indication: CHRONIC OBSTRUCTIVE PULMONARY DISEASE
     Route: 065
  2. AMLODIPINE BESYLATE [Concomitant]
  3. VYTORIN [Concomitant]
  4. IRBESARTAN [Concomitant]
  5. FUROSEMIDE + SPIRONOLACTONE [Concomitant]
  6. TEOLONG [Concomitant]
  7. BAMBEC [Concomitant]

REACTIONS (1)
  - DEATH [None]
